FAERS Safety Report 9326199 (Version 2)
Quarter: 2013Q3

REPORT INFORMATION
  Report Type: Spontaneous
  Country: FR (occurrence: FR)
  Receive Date: 20130604
  Receipt Date: 20130812
  Transmission Date: 20140515
  Serious: Yes (Hospitalization)
  Sender: FDA-Public Use
  Company Number: FR-JNJFOC-20130516604

PATIENT
  Age: 22 Year
  Sex: Male
  Weight: 97 kg

DRUGS (9)
  1. XEPLION [Suspect]
     Indication: PSYCHOTIC DISORDER
     Route: 030
     Dates: start: 20130418
  2. XEPLION [Suspect]
     Indication: PSYCHOTIC DISORDER
     Route: 030
     Dates: start: 20130409
  3. XEPLION [Suspect]
     Indication: PSYCHOTIC DISORDER
     Route: 030
     Dates: start: 20130410
  4. XEPLION [Suspect]
     Indication: PSYCHOTIC DISORDER
     Route: 030
     Dates: start: 20130417
  5. XEPLION [Suspect]
     Indication: PERSONALITY DISORDER
     Route: 030
     Dates: start: 20130418
  6. XEPLION [Suspect]
     Indication: PERSONALITY DISORDER
     Route: 030
     Dates: start: 20130409
  7. XEPLION [Suspect]
     Indication: PERSONALITY DISORDER
     Route: 030
     Dates: start: 20130410
  8. XEPLION [Suspect]
     Indication: PERSONALITY DISORDER
     Route: 030
     Dates: start: 20130417
  9. LEPTICUR [Suspect]
     Indication: PRODUCT USED FOR UNKNOWN INDICATION
     Route: 048
     Dates: start: 20130408

REACTIONS (9)
  - Pulmonary embolism [Recovered/Resolved]
  - Deep vein thrombosis [Recovering/Resolving]
  - Condition aggravated [Recovering/Resolving]
  - Tachycardia [Recovered/Resolved]
  - Extrapyramidal disorder [Recovered/Resolved]
  - Somnolence [Recovered/Resolved]
  - Salivary hypersecretion [Recovered/Resolved]
  - Off label use [Unknown]
  - Inappropriate schedule of drug administration [Unknown]
